FAERS Safety Report 7796804-8 (Version None)
Quarter: 2011Q4

REPORT INFORMATION
  Report Type: 
  Country: None (occurrence: None)
  Receive Date: 20111005
  Receipt Date: 20110923
  Transmission Date: 20120403
  Serious: Yes (Hospitalization)
  Sender: FDA-Public Use
  Company Number: US-GENZYME-CERZ-1002240

PATIENT
  Sex: Female
  Weight: 88.6 kg

DRUGS (20)
  1. AMOXICILLIN [Concomitant]
     Indication: PRODUCT USED FOR UNKNOWN INDICATION
     Route: 065
  2. COQ10 [Concomitant]
     Indication: PRODUCT USED FOR UNKNOWN INDICATION
     Route: 065
  3. ACYCLOVIR [Concomitant]
     Indication: HERPES SIMPLEX
     Dosage: 400 MG, QDX3
     Route: 048
  4. SINGULAIR [Concomitant]
     Indication: PRODUCT USED FOR UNKNOWN INDICATION
     Route: 065
  5. AMBIEN [Concomitant]
     Indication: URTICARIA
     Dosage: 10 MG, PRN
     Route: 048
  6. ZANTAC [Concomitant]
     Indication: PRODUCT USED FOR UNKNOWN INDICATION
     Dosage: UNK
     Route: 048
  7. CEREZYME [Suspect]
  8. PREDNISONE [Concomitant]
     Indication: PRODUCT USED FOR UNKNOWN INDICATION
     Route: 065
  9. ACTONEL [Concomitant]
     Indication: OSTEOPENIA
     Dosage: 35 MG, 1X/W
     Route: 048
  10. HUMIRA [Concomitant]
     Indication: PRODUCT USED FOR UNKNOWN INDICATION
     Dosage: 40MG/0.8 ML, Q2W
     Route: 058
  11. ADVAIR DISKUS 100/50 [Concomitant]
     Indication: ASTHMA
     Dosage: 250 MCG/50 MCG, Q12HR
     Route: 055
  12. PLAQUENIL [Concomitant]
     Indication: PRODUCT USED FOR UNKNOWN INDICATION
     Route: 065
  13. GLUCOSE + CHONDROITIN [Concomitant]
     Indication: PROPHYLAXIS
     Route: 065
  14. CEREZYME [Suspect]
     Indication: GAUCHER'S DISEASE
     Dosage: 59 U/KG, Q2W
     Route: 042
     Dates: start: 20010727
  15. DIPHENHYDRAMINE HCL [Concomitant]
     Indication: PRODUCT USED FOR UNKNOWN INDICATION
     Route: 065
  16. XANAX [Concomitant]
     Indication: ANXIETY
     Dosage: 0.5 MG, QDX3
     Route: 048
  17. FLONASE [Concomitant]
     Indication: PRODUCT USED FOR UNKNOWN INDICATION
     Route: 065
  18. HYDROXYZINE [Concomitant]
     Indication: URTICARIA
     Dosage: 50 MG, Q6HR
     Route: 048
  19. ALBUTEROL [Concomitant]
     Indication: ASTHMA
     Dosage: UNK
     Route: 055
  20. ZYRTEC [Concomitant]
     Indication: PRODUCT USED FOR UNKNOWN INDICATION
     Route: 065

REACTIONS (2)
  - CELLULITIS [None]
  - ANIMAL BITE [None]
